FAERS Safety Report 21120232 (Version 2)
Quarter: 2022Q3

REPORT INFORMATION
  Report Type: Spontaneous
  Country: CA (occurrence: CA)
  Receive Date: 20220722
  Receipt Date: 20220729
  Transmission Date: 20221027
  Serious: Yes (Hospitalization)
  Sender: FDA-Public Use
  Company Number: CA-CELLTRION INC.-2022CA011496

PATIENT

DRUGS (4)
  1. INFLECTRA [Suspect]
     Active Substance: INFLIXIMAB-DYYB
     Indication: Colitis ulcerative
     Dosage: 500 MG, INDUCTION AT WEEK 0, WEEK 2 AND WEEK 6 MAINTENANCE EVERY 8 WEEKS
     Route: 042
     Dates: start: 20220620
  2. INFLECTRA [Suspect]
     Active Substance: INFLIXIMAB-DYYB
     Dosage: 500 MG, INDUCTION AT WEEK 0, WEEK 2 AND WEEK 6 MAINTENANCE EVERY 8 WEEKS
     Route: 042
     Dates: start: 20220714
  3. IMURAN [Concomitant]
     Active Substance: AZATHIOPRINE
     Dosage: 200 MG, DAILY
     Route: 048
  4. IMURAN [Concomitant]
     Active Substance: AZATHIOPRINE
     Dosage: 1 DF, UNKNOWN DOSE
     Route: 065

REACTIONS (11)
  - Weight decreased [Unknown]
  - Asthenia [Recovering/Resolving]
  - Decreased appetite [Recovering/Resolving]
  - Pain [Recovering/Resolving]
  - Inappropriate schedule of product administration [Unknown]
  - Malaise [Unknown]
  - Hypopnoea [Unknown]
  - Pyrexia [Unknown]
  - Influenza [Unknown]
  - Painful respiration [Unknown]
  - Influenza [Recovered/Resolved]

NARRATIVE: CASE EVENT DATE: 20220101
